FAERS Safety Report 17878179 (Version 2)
Quarter: 2021Q3

REPORT INFORMATION
  Report Type: Spontaneous
  Country: US (occurrence: US)
  Receive Date: 20200610
  Receipt Date: 20210720
  Transmission Date: 20211014
  Serious: Yes (Other)
  Sender: FDA-Public Use
  Company Number: US-TEVA-2020-US-1245567

PATIENT
  Sex: Male

DRUGS (2)
  1. LOSARTAN HYDROCHLORTHIAZIDE TORRENT [Suspect]
     Active Substance: HYDROCHLOROTHIAZIDE\LOSARTAN
     Indication: HYPERTENSION
     Dosage: 100MG/25MG TABLET
     Route: 048
     Dates: start: 20180801, end: 20181230
  2. VALSARTAN HYDROCHLORTHIAZIDE AUROBINDO [Suspect]
     Active Substance: HYDROCHLOROTHIAZIDE\VALSARTAN
     Indication: HYPERTENSION
     Dosage: 320MG/25MG TABLET
     Route: 048
     Dates: start: 20151120, end: 20170408

REACTIONS (1)
  - Hepatic cancer [Unknown]
